FAERS Safety Report 5919690-7 (Version None)
Quarter: 2008Q4

REPORT INFORMATION
  Report Type: 
  Country: None (occurrence: None)
  Receive Date: 20081015
  Receipt Date: 20081006
  Transmission Date: 20090506
  Serious: Yes (Other)
  Sender: FDA-Public Use
  Company Number: US-JNJCH-2008025851

PATIENT
  Sex: Female
  Weight: 98.9 kg

DRUGS (3)
  1. BENADRYL [Suspect]
     Indication: FOOD ALLERGY
     Dosage: TEXT:UNSPECIFIED
     Route: 042
  2. BENADRYL [Suspect]
     Indication: RASH
     Dosage: TEXT:EVERY 6 HOURS
     Route: 048
     Dates: start: 20080928, end: 20080929
  3. DRUG, UNSPECIFIED [Concomitant]
     Indication: ARTHRITIS
     Dosage: TEXT:UNSPECIFIED
     Route: 065

REACTIONS (3)
  - BLOOD PRESSURE FLUCTUATION [None]
  - DIZZINESS [None]
  - RASH [None]
